FAERS Safety Report 7736823-0 (Version None)
Quarter: 2011Q3

REPORT INFORMATION
  Report Type: 
  Country: None (occurrence: None)
  Receive Date: 20110908
  Receipt Date: 20110908
  Transmission Date: 20111222
  Serious: Yes (Other)
  Sender: FDA-Public Use
  Company Number: None

PATIENT
  Age: 42 Year
  Sex: Female
  Weight: 49.895 kg

DRUGS (3)
  1. CORTEF [Concomitant]
  2. ACTONEL [Suspect]
     Indication: RIB FRACTURE
     Dosage: 5MG
     Route: 048
     Dates: start: 20050801, end: 20060801
  3. ACTONEL [Suspect]
     Indication: OSTEOPENIA
     Dosage: 5MG
     Route: 048
     Dates: start: 20050801, end: 20060801

REACTIONS (6)
  - FOOD ALLERGY [None]
  - DYSPEPSIA [None]
  - NAUSEA [None]
  - ABDOMINAL DISCOMFORT [None]
  - GASTROOESOPHAGEAL REFLUX DISEASE [None]
  - GASTRIC DISORDER [None]
